FAERS Safety Report 21239461 (Version 2)
Quarter: 2022Q3

REPORT INFORMATION
  Report Type: Spontaneous
  Country: CZ (occurrence: CZ)
  Receive Date: 20220822
  Receipt Date: 20220825
  Transmission Date: 20221027
  Serious: Yes (Other)
  Sender: FDA-Public Use
  Company Number: CZ-FreseniusKabi-FK202209875

PATIENT
  Age: 63 Year
  Sex: Male

DRUGS (12)
  1. CAPECITABINE [Suspect]
     Active Substance: CAPECITABINE
     Indication: Rectal adenocarcinoma
     Dosage: UNK (A DOSE OF 45 GY/25 FRACTIONS WAS ADMINISTERED)
     Route: 065
     Dates: start: 201808
  2. CAPECITABINE [Suspect]
     Active Substance: CAPECITABINE
     Indication: Chemotherapy
  3. CAPECITABINE [Suspect]
     Active Substance: CAPECITABINE
     Indication: Radiotherapy
  4. OXALIPLATIN [Suspect]
     Active Substance: OXALIPLATIN
     Indication: Rectal adenocarcinoma
     Dosage: UNK, MFOLFOX6 ADJUVANT CHEMOTHERAPY, 6 CYCLES OF MFOLFOX6
     Route: 065
     Dates: start: 201808, end: 201812
  5. OXALIPLATIN [Suspect]
     Active Substance: OXALIPLATIN
     Indication: Colorectal cancer
  6. FLUOROURACIL [Suspect]
     Active Substance: FLUOROURACIL
     Indication: Rectal adenocarcinoma
     Dosage: UNK, ~MFOLFOX6 ADJUVANT CHEMOTHERAPY, ~6 CYCLES OF MFOLFOX6
     Route: 065
     Dates: start: 201808, end: 201812
  7. FLUOROURACIL [Suspect]
     Active Substance: FLUOROURACIL
     Indication: Colorectal cancer
  8. LEUCOVORIN CALCIUM [Suspect]
     Active Substance: LEUCOVORIN CALCIUM
     Indication: Rectal adenocarcinoma
     Dosage: UNK, MFOLFOX6 ADJUVANT CHEMOTHERAPY
     Route: 065
     Dates: start: 201808, end: 201812
  9. LEUCOVORIN [Suspect]
     Active Substance: LEUCOVORIN
     Indication: Colorectal cancer
     Dosage: UNK, 6 CYCLES OF MFOLFOX6
     Route: 065
     Dates: start: 201808, end: 201812
  10. FLUOROURACIL\LEUCOVORIN CALCIUM\OXALIPLATIN [Suspect]
     Active Substance: FLUOROURACIL\LEUCOVORIN CALCIUM\OXALIPLATIN
     Indication: Chemotherapy
     Dosage: UNK (6 CYCLES)
     Route: 065
     Dates: start: 201808, end: 201812
  11. AMLODIPINE BESYLATE\PERINDOPRIL ARGININE [Concomitant]
     Active Substance: AMLODIPINE BESYLATE\PERINDOPRIL ARGININE
     Indication: Hypertension
     Dosage: 5 MILLIGRAM
     Route: 065
  12. CAPECITABINE [Concomitant]
     Active Substance: CAPECITABINE
     Indication: Colorectal cancer
     Dosage: UNK
     Route: 065

REACTIONS (8)
  - Haematotoxicity [Recovered/Resolved]
  - Gastrointestinal toxicity [Recovered/Resolved]
  - Rectal tenesmus [Unknown]
  - Neurotoxicity [Recovered/Resolved]
  - Neuropathy peripheral [Recovered/Resolved]
  - Thrombocytopenia [Recovered/Resolved]
  - Dysuria [Unknown]
  - Diarrhoea [Unknown]

NARRATIVE: CASE EVENT DATE: 20180101
